FAERS Safety Report 7078843-8 (Version None)
Quarter: 2010Q4

REPORT INFORMATION
  Report Type: 
  Country: None (occurrence: None)
  Receive Date: 20101102
  Receipt Date: 20101020
  Transmission Date: 20110411
  Serious: Yes (Other)
  Sender: FDA-Public Use
  Company Number: JP-SANOFI-AVENTIS-2010SA065634

PATIENT
  Age: 65 Year
  Sex: Female

DRUGS (2)
  1. MYSLEE [Suspect]
     Route: 048
     Dates: start: 20100622
  2. ANTICHOLINERGIC AGENTS [Concomitant]
     Route: 048

REACTIONS (1)
  - MACULOPATHY [None]
